FAERS Safety Report 6919751-X (Version None)
Quarter: 2010Q3

REPORT INFORMATION
  Report Type: 
  Country: None (occurrence: None)
  Receive Date: 20100810
  Receipt Date: 20100810
  Transmission Date: 20110219
  Serious: No
  Sender: FDA-Public Use
  Company Number: None

PATIENT

DRUGS (1)
  1. TYLENOL (CAPLET) [Suspect]

REACTIONS (7)
  - CONSTIPATION [None]
  - DIARRHOEA [None]
  - FEELING ABNORMAL [None]
  - IRRITABLE BOWEL SYNDROME [None]
  - MALAISE [None]
  - NO THERAPEUTIC RESPONSE [None]
  - PRODUCT QUALITY ISSUE [None]
